FAERS Safety Report 19394195 (Version 2)
Quarter: 2021Q2

REPORT INFORMATION
  Report Type: Report from Study
  Country: CA (occurrence: CA)
  Receive Date: 20210609
  Receipt Date: 20210615
  Transmission Date: 20210717
  Serious: Yes (Death, Other)
  Sender: FDA-Public Use
  Company Number: CA-TAKEDA-2021TUS036200

PATIENT
  Age: 77 Year
  Sex: Female

DRUGS (4)
  1. CUVITRU [Suspect]
     Active Substance: HUMAN IMMUNOGLOBULIN G
     Indication: PRIMARY IMMUNODEFICIENCY SYNDROME
     Dosage: 6 GRAM, 1/WEEK
     Route: 065
     Dates: start: 20180829, end: 20201217
  2. DARBEPOETIN ALFA [Concomitant]
     Active Substance: DARBEPOETIN ALFA
  3. SIROLIMUS. [Concomitant]
     Active Substance: SIROLIMUS
  4. APIXABAN [Concomitant]
     Active Substance: APIXABAN

REACTIONS (1)
  - COVID-19 [Fatal]
